FAERS Safety Report 5159422-6 (Version None)
Quarter: 2006Q4

REPORT INFORMATION
  Report Type: 
  Country: None (occurrence: None)
  Receive Date: 20061122
  Receipt Date: 20061122
  Transmission Date: 20070319
  Serious: Yes (Hospitalization)
  Sender: FDA-Public Use
  Company Number: None

PATIENT
  Age: 33 Year
  Sex: Female

DRUGS (1)
  1. HABITROL [Suspect]
     Dosage: 14MG DAILY CUTANEOUS
     Route: 003
     Dates: start: 20060807, end: 20060821

REACTIONS (1)
  - URTICARIA [None]
